FAERS Safety Report 15943087 (Version 2)
Quarter: 2019Q1

REPORT INFORMATION
  Report Type: Spontaneous
  Country: JP (occurrence: JP)
  Receive Date: 20190210
  Receipt Date: 20190210
  Transmission Date: 20190417
  Serious: Yes (Death)
  Sender: FDA-Public Use
  Company Number: PHHY2019JP029852

PATIENT
  Age: 85 Year
  Sex: Female

DRUGS (1)
  1. PREDNISOLONE. [Suspect]
     Active Substance: PREDNISOLONE
     Indication: HENOCH-SCHONLEIN PURPURA NEPHRITIS
     Dosage: 0.7 MG/KG, UNK
     Route: 048

REACTIONS (3)
  - Cytomegalovirus infection [Fatal]
  - Pneumonia [Fatal]
  - Sepsis [Fatal]
